FAERS Safety Report 7804467-8 (Version None)
Quarter: 2011Q4

REPORT INFORMATION
  Report Type: 
  Country: None (occurrence: None)
  Receive Date: 20111010
  Receipt Date: 20111005
  Transmission Date: 20120403
  Serious: Yes (Death)
  Sender: FDA-Public Use
  Company Number: JP-SANOFI-AVENTIS-2011SA064519

PATIENT
  Age: 74 Year
  Sex: Male
  Weight: 49 kg

DRUGS (3)
  1. WARFARIN SODIUM [Suspect]
     Dosage: STRENGTH: 2.5 MG
     Route: 065
  2. PLAVIX [Suspect]
     Indication: CEREBRAL INFARCTION
     Route: 065
     Dates: start: 20090301
  3. EPADEL [Suspect]
     Route: 065

REACTIONS (1)
  - CEREBRAL HAEMORRHAGE [None]
